FAERS Safety Report 18610486 (Version 1)
Quarter: 2020Q4

REPORT INFORMATION
  Report Type: Spontaneous
  Country: US (occurrence: US)
  Receive Date: 20201211
  Receipt Date: 20201211
  Transmission Date: 20210114
  Serious: Yes (Other)
  Sender: FDA-Public Use
  Company Number: None

PATIENT
  Age: 6 Year
  Sex: Female
  Weight: 22.05 kg

DRUGS (2)
  1. INTUNIV [Suspect]
     Active Substance: GUANFACINE HYDROCHLORIDE
     Indication: ATTENTION DEFICIT HYPERACTIVITY DISORDER
     Dates: start: 20201208, end: 20201210
  2. ALBUTEROL 90 MCG [Concomitant]
     Active Substance: ALBUTEROL

REACTIONS (5)
  - Nausea [None]
  - Confusional state [None]
  - Loss of consciousness [None]
  - Hallucination, visual [None]
  - Somnolence [None]

NARRATIVE: CASE EVENT DATE: 20201210
